FAERS Safety Report 5700455-6 (Version None)
Quarter: 2008Q2

REPORT INFORMATION
  Report Type: 
  Country: None (occurrence: None)
  Receive Date: 20080407
  Receipt Date: 20080325
  Transmission Date: 20081010
  Serious: Yes (Hospitalization)
  Sender: FDA-Public Use
  Company Number: 2008AL001885

PATIENT
  Age: 36 Year
  Sex: Male

DRUGS (4)
  1. BUSPIRONE HYDROCHLORIDE [Suspect]
  2. TRAZODONE HYDROCHLORIDE [Suspect]
  3. BUPROPION HCL [Concomitant]
  4. ALCOHOL [Concomitant]

REACTIONS (3)
  - ALCOHOL USE [None]
  - ELECTROCARDIOGRAM QT PROLONGED [None]
  - MULTIPLE DRUG OVERDOSE [None]
